FAERS Safety Report 10095036 (Version 1)
Quarter: 2014Q2

REPORT INFORMATION
  Report Type: Spontaneous
  Country: US (occurrence: None)
  Receive Date: 20140421
  Receipt Date: 20140421
  Transmission Date: 20141212
  Serious: Yes (Hospitalization)
  Sender: FDA-Public Use
  Company Number: None

PATIENT
  Age: 66 Day
  Sex: Male
  Weight: 74 kg

DRUGS (2)
  1. AMITRIPTYLINE [Suspect]
     Indication: DEPRESSION
     Dosage: 50 MG HS PO
     Route: 048
     Dates: start: 20091109, end: 20140407
  2. PRAZOSIN [Suspect]
     Indication: POST-TRAUMATIC STRESS DISORDER
     Route: 048
     Dates: start: 20090720, end: 20140407

REACTIONS (2)
  - Syncope [None]
  - Dizziness [None]
